FAERS Safety Report 8463552 (Version 2)
Quarter: 2015Q2

REPORT INFORMATION
  Report Type: Spontaneous
  Country: US (occurrence: US)
  Receive Date: 20120316
  Receipt Date: 20150513
  Transmission Date: 20150821
  Serious: Yes (Hospitalization, Other)
  Sender: FDA-Public Use
  Company Number: US-MERCK-1203USA01856

PATIENT
  Sex: Female
  Weight: 68.93 kg

DRUGS (3)
  1. FOSAMAX [Suspect]
     Active Substance: ALENDRONATE SODIUM
     Indication: OSTEOPOROSIS
     Dosage: 70 MG, QW
     Route: 048
     Dates: start: 20020212, end: 20080131
  2. ALENDRONATE SODIUM. [Suspect]
     Active Substance: ALENDRONATE SODIUM
     Indication: OSTEOPOROSIS
     Dosage: 70 MG, QW
     Dates: start: 20080220, end: 20100610
  3. FOSAMAX [Suspect]
     Active Substance: ALENDRONATE SODIUM
     Indication: OSTEOPOROSIS
     Dosage: 70 MG, QW
     Route: 048
     Dates: start: 2005, end: 2010

REACTIONS (17)
  - Bone graft [Unknown]
  - Atrophic vulvovaginitis [Unknown]
  - Muscular weakness [Unknown]
  - Hyperglycaemia [Unknown]
  - Urinary tract infection [Unknown]
  - Dental implantation [Unknown]
  - Spinal compression fracture [Unknown]
  - Hypokalaemia [Unknown]
  - Abnormal weight gain [Unknown]
  - Femur fracture [Recovering/Resolving]
  - Foot fracture [Unknown]
  - Dizziness [Unknown]
  - Scoliosis [Unknown]
  - Cognitive disorder [Unknown]
  - Anaemia [Unknown]
  - Intramedullary rod insertion [Unknown]
  - Restless legs syndrome [Unknown]

NARRATIVE: CASE EVENT DATE: 20030414
